FAERS Safety Report 11793379 (Version 1)
Quarter: 2015Q4

REPORT INFORMATION
  Report Type: Other
  Country: SG (occurrence: SG)
  Receive Date: 20151202
  Receipt Date: 20151202
  Transmission Date: 20160305
  Serious: Yes (Other)
  Sender: FDA-Public Use
  Company Number: SG-ASTELLAS-2015US044717

PATIENT
  Age: 15 Year
  Sex: Female

DRUGS (1)
  1. TACROLIMUS. [Suspect]
     Active Substance: TACROLIMUS
     Indication: PRODUCT USED FOR UNKNOWN INDICATION
     Dosage: UNK UNK, UNKNOWN FREQ.
     Route: 050

REACTIONS (2)
  - Discomfort [Unknown]
  - Burning sensation [Unknown]

NARRATIVE: CASE EVENT DATE: 20151007
